FAERS Safety Report 18277838 (Version 1)
Quarter: 2020Q3

REPORT INFORMATION
  Report Type: Spontaneous
  Country: US (occurrence: US)
  Receive Date: 20200917
  Receipt Date: 20200917
  Transmission Date: 20201103
  Serious: No
  Sender: FDA-Public Use
  Company Number: None

PATIENT
  Age: 65 Year
  Sex: Male
  Weight: 130.5 kg

DRUGS (1)
  1. TRULICITY [Suspect]
     Active Substance: DULAGLUTIDE
     Indication: DIABETES MELLITUS
     Dosage: ?          QUANTITY:1 INJECTION(S);OTHER FREQUENCY:ONCE WEEKLY;?
     Route: 058

REACTIONS (6)
  - Constipation [None]
  - Abdominal pain [None]
  - Abdominal pain upper [None]
  - Abdominal discomfort [None]
  - Abdominal distension [None]
  - Drug ineffective [None]

NARRATIVE: CASE EVENT DATE: 20200508
